FAERS Safety Report 15577952 (Version 3)
Quarter: 2018Q4

REPORT INFORMATION
  Report Type: Spontaneous
  Country: US (occurrence: US)
  Receive Date: 20181102
  Receipt Date: 20181217
  Transmission Date: 20190205
  Serious: No
  Sender: FDA-Public Use
  Company Number: US-PFIZER INC-2018371149

PATIENT
  Age: 1 Year
  Sex: Female

DRUGS (3)
  1. EUCRISA [Suspect]
     Active Substance: CRISABOROLE
     Indication: DERMATITIS ATOPIC
  2. EUCRISA [Suspect]
     Active Substance: CRISABOROLE
     Indication: ECZEMA
     Dosage: UNK, AS NEEDED (TWICE DAILY AS NEEDED)
     Route: 061
  3. EUCRISA [Suspect]
     Active Substance: CRISABOROLE
     Indication: ECZEMA INFANTILE
     Dosage: UNK UNK, 2X/DAY (APPLY TO AFFECTED AREA TWICE DAILY)
     Route: 061
     Dates: start: 201809

REACTIONS (4)
  - Application site erythema [Recovered/Resolved]
  - Application site pruritus [Unknown]
  - Skin irritation [Recovered/Resolved]
  - Product use issue [Unknown]
